FAERS Safety Report 8244379-1 (Version None)
Quarter: 2012Q1

REPORT INFORMATION
  Report Type: 
  Country: None (occurrence: None)
  Receive Date: 20120329
  Receipt Date: 20120326
  Transmission Date: 20120608
  Serious: Yes (Other)
  Sender: FDA-Public Use
  Company Number: VE-PFIZER INC-2012071289

PATIENT
  Age: 67 Year
  Sex: Female

DRUGS (2)
  1. ATACAND [Concomitant]
     Indication: HYPERTENSION
     Dosage: 16 MG, 1X/DAY
     Route: 048
     Dates: start: 20110101
  2. ZOLOFT [Suspect]
     Indication: DEPRESSION
     Dosage: UNK
     Route: 048

REACTIONS (1)
  - BUNION [None]
